FAERS Safety Report 16352331 (Version 1)
Quarter: 2019Q2

REPORT INFORMATION
  Report Type: Report from Study
  Country: DE (occurrence: DE)
  Receive Date: 20190524
  Receipt Date: 20190524
  Transmission Date: 20190711
  Serious: Yes (Hospitalization, Other)
  Sender: FDA-Public Use
  Company Number: DE-MYLANLABS-2019M1048177

PATIENT
  Age: 70 Year
  Sex: Male
  Weight: 82.4 kg

DRUGS (12)
  1. TORASEMID [Suspect]
     Active Substance: TORSEMIDE
     Dosage: 5 MILLIGRAM, QD
     Route: 048
     Dates: start: 20170905
  2. TAMSULOSIN [Concomitant]
     Active Substance: TAMSULOSIN
     Indication: PRODUCT USED FOR UNKNOWN INDICATION
     Dosage: 0.4 MG, QD
     Route: 065
     Dates: start: 20170127
  3. TORASEMID [Suspect]
     Active Substance: TORSEMIDE
     Dosage: UNK
  4. SPIRONOLACTON [Suspect]
     Active Substance: SPIRONOLACTONE
     Indication: PRODUCT USED FOR UNKNOWN INDICATION
     Dosage: 12.5 OT, QD
     Route: 065
     Dates: start: 20170905
  5. DELIX                              /00885601/ [Concomitant]
     Active Substance: RAMIPRIL
     Indication: PRODUCT USED FOR UNKNOWN INDICATION
     Dosage: 5 MG, QD (1-0-0)
     Route: 065
  6. TORASEMID [Suspect]
     Active Substance: TORSEMIDE
     Indication: CARDIAC FAILURE CHRONIC
     Dosage: 10 MG, QD
     Route: 048
  7. TILIDINE [Concomitant]
     Active Substance: TILIDINE
     Indication: PRODUCT USED FOR UNKNOWN INDICATION
     Dosage: 100/8MG, QD
     Route: 065
  8. METOPROLOL. [Suspect]
     Active Substance: METOPROLOL
     Indication: PRODUCT USED FOR UNKNOWN INDICATION
     Dosage: 47.5 MG, QD
     Route: 065
     Dates: start: 20170908
  9. TORASEMID [Suspect]
     Active Substance: TORSEMIDE
     Dosage: 5 MILLIGRAM, QD
     Route: 048
     Dates: start: 20180823
  10. PANTOPRAZOLE [Concomitant]
     Active Substance: PANTOPRAZOLE
     Indication: PRODUCT USED FOR UNKNOWN INDICATION
     Dosage: 40 MG, QD (0-0-1)
     Route: 065
  11. MONO-EMBOLEX [Concomitant]
     Active Substance: CERTOPARIN SODIUM
     Indication: PRODUCT USED FOR UNKNOWN INDICATION
     Dosage: 3000 IU, QD
     Route: 058
  12. TOREM                              /01036501/ [Concomitant]
     Active Substance: TORSEMIDE
     Indication: PRODUCT USED FOR UNKNOWN INDICATION
     Dosage: 5 MG, QD (0-1-0)
     Route: 065

REACTIONS (16)
  - Spinal compression fracture [Recovered/Resolved with Sequelae]
  - Vertigo [Unknown]
  - Skin laceration [Unknown]
  - Dyspnoea [Unknown]
  - Syncope [Unknown]
  - Cardiac failure chronic [Unknown]
  - Arteriosclerosis coronary artery [Unknown]
  - Hypotonia [Unknown]
  - Osteoarthritis [Unknown]
  - Arteriosclerosis [Unknown]
  - Bone pain [Unknown]
  - Pleural effusion [Unknown]
  - Chest pain [Recovered/Resolved]
  - Fall [Unknown]
  - Adrenal gland cancer [Unknown]
  - Emphysema [Unknown]

NARRATIVE: CASE EVENT DATE: 20170930
